FAERS Safety Report 7586878-1 (Version None)
Quarter: 2011Q3

REPORT INFORMATION
  Report Type: 
  Country: None (occurrence: None)
  Receive Date: 20110701
  Receipt Date: 20110621
  Transmission Date: 20111222
  Serious: Yes (Hospitalization)
  Sender: FDA-Public Use
  Company Number: TW-MYLANLABS-2011S1013101

PATIENT
  Age: 78 Year
  Sex: Male

DRUGS (5)
  1. LACIDIPINE [Concomitant]
     Dosage: 4 MG/DAY
     Route: 065
  2. QUETIAPINE [Interacting]
     Indication: DELUSION
     Dosage: 12.5 MG/DAY
     Route: 065
  3. WARFARIN SODIUM [Suspect]
     Indication: ATRIAL FIBRILLATION
     Dosage: 3.75 MG/DAY
     Route: 065
  4. ATENOLOL [Concomitant]
     Dosage: 50 MG/DAY
     Route: 065
  5. DONEPEZIL HCL [Concomitant]
     Dosage: 5 MG/DAY
     Route: 065

REACTIONS (2)
  - CEREBRAL HAEMORRHAGE [None]
  - DRUG INTERACTION [None]
